FAERS Safety Report 16527550 (Version 2)
Quarter: 2020Q1

REPORT INFORMATION
  Report Type: Report from Study
  Country: US (occurrence: US)
  Receive Date: 20190703
  Receipt Date: 20200121
  Transmission Date: 20200409
  Serious: No
  Sender: FDA-Public Use
  Company Number: US-SA-2019SA177789

PATIENT
  Age: 23 Year
  Sex: Male

DRUGS (1)
  1. ALEMTUZUMAB [Suspect]
     Active Substance: ALEMTUZUMAB
     Dosage: UNK UNK, UNK
     Route: 041
     Dates: start: 20190128, end: 20190201

REACTIONS (3)
  - Blood thyroid stimulating hormone abnormal [Unknown]
  - Central nervous system lesion [Unknown]
  - Amnesia [Unknown]
